FAERS Safety Report 19922256 (Version 1)
Quarter: 2021Q4

REPORT INFORMATION
  Report Type: Spontaneous
  Country: US (occurrence: US)
  Receive Date: 20211005
  Receipt Date: 20211005
  Transmission Date: 20220303
  Serious: No
  Sender: FDA-Public Use
  Company Number: None

PATIENT
  Age: 36 Year
  Sex: Male
  Weight: 107 kg

DRUGS (2)
  1. REGEN-COV [Suspect]
     Active Substance: CASIRIVIMAB\IMDEVIMAB
     Indication: COVID-19
     Dosage: ?          OTHER DOSE:600/600 MG;OTHER ROUTE:IC
     Dates: start: 20210929, end: 20210929
  2. REGEN-COV [Suspect]
     Active Substance: CASIRIVIMAB\IMDEVIMAB
     Dosage: ?          OTHER DOSE:600/600 MG;OTHER ROUTE:IC
     Dates: start: 20210929, end: 20210929

REACTIONS (7)
  - Cough [None]
  - Wheezing [None]
  - Hypotension [None]
  - Pyrexia [None]
  - Tachypnoea [None]
  - Respiratory depression [None]
  - Oxygen saturation decreased [None]

NARRATIVE: CASE EVENT DATE: 20210929
